FAERS Safety Report 22321478 (Version 2)
Quarter: 2023Q2

REPORT INFORMATION
  Report Type: Report from Study
  Country: AU (occurrence: AU)
  Receive Date: 20230515
  Receipt Date: 20230531
  Transmission Date: 20230721
  Serious: Yes (Hospitalization)
  Sender: FDA-Public Use
  Company Number: AU-SEATTLE GENETICS-2022SGN12116

PATIENT
  Age: 57 Year
  Sex: Female
  Weight: 88.2 kg

DRUGS (20)
  1. TUCATINIB [Suspect]
     Active Substance: TUCATINIB
     Indication: HER2 positive breast cancer
     Dosage: 200 MG, BID, ON A 21-DAY-CYCLE
     Route: 048
     Dates: start: 20210111
  2. ADO-TRASTUZUMAB EMTANSINE [Suspect]
     Active Substance: ADO-TRASTUZUMAB EMTANSINE
     Indication: HER2 positive breast cancer
     Dosage: 2.4 MG/KG, Q21D
     Route: 042
     Dates: start: 20210111
  3. LOPERAMIDE [Suspect]
     Active Substance: LOPERAMIDE
     Dosage: 2 MG, PRN
     Route: 048
     Dates: start: 20210112
  4. PHENERGAN [Concomitant]
     Active Substance: PROMETHAZINE HYDROCHLORIDE
     Indication: Pruritus
     Dosage: 10 MG, NIGHTLY
     Route: 048
     Dates: start: 20211214
  5. CETAPHIL PRO ECZEMA [Concomitant]
     Indication: Dry skin
     Dosage: UNK, PRN
     Route: 061
     Dates: start: 20210921
  6. IBUPROFEN [Concomitant]
     Active Substance: IBUPROFEN
     Indication: Arthralgia
     Dosage: 200 MG, BID PRN
     Route: 048
     Dates: start: 20210915
  7. IBUPROFEN [Concomitant]
     Active Substance: IBUPROFEN
     Indication: Neck pain
     Dosage: 200 MG, PRN
     Route: 048
     Dates: start: 20220620
  8. ACETAMINOPHEN [Concomitant]
     Active Substance: ACETAMINOPHEN
     Indication: Arthralgia
     Dosage: 1 G, PRN
     Route: 048
     Dates: start: 20220616
  9. LEVOTHYROXINE SODIUM [Concomitant]
     Active Substance: LEVOTHYROXINE SODIUM
     Indication: Hypothyroidism
     Dosage: 200 G, QD
     Route: 048
     Dates: start: 20220810
  10. PARADOL [PARACETAMOL] [Concomitant]
     Indication: Headache
     Dosage: 1 G, PRN
     Route: 048
     Dates: start: 20210928
  11. PARADOL [PARACETAMOL] [Concomitant]
     Indication: Neck pain
     Dosage: 1 G, PRN
     Route: 048
     Dates: start: 20221119
  12. PARADOL [PARACETAMOL] [Concomitant]
     Dosage: 1 G
     Route: 042
     Dates: start: 20221220, end: 20221220
  13. MAGNESIUM [Concomitant]
     Active Substance: MAGNESIUM
     Indication: Supplementation therapy
     Dosage: 1000 MG, QD
     Route: 048
     Dates: start: 2017
  14. VITAMIN D NOS [Concomitant]
     Active Substance: VITAMIN D NOS
     Indication: Supplementation therapy
     Dosage: 300 MG, QD
     Route: 048
     Dates: start: 2016
  15. CANDESARTAN [Concomitant]
     Active Substance: CANDESARTAN
     Indication: Hypertension
     Dosage: 8 MG, QD
     Route: 048
     Dates: start: 2018
  16. PANTOPRAZOLE [Concomitant]
     Active Substance: PANTOPRAZOLE
     Indication: Gastrooesophageal reflux disease
     Dosage: 20 MG, QD
     Route: 048
     Dates: start: 2016
  17. NASONEX [Concomitant]
     Active Substance: MOMETASONE FUROATE
     Indication: Seasonal allergy
     Dosage: 50 ?G, QD PRN
     Route: 045
     Dates: start: 20210424
  18. BIOTIN [Concomitant]
     Active Substance: BIOTIN
     Indication: Dry mouth
     Dosage: 1-2 CM, PRN
     Route: 061
     Dates: start: 20210317
  19. FLUOROMETHOLONE [Concomitant]
     Active Substance: FLUOROMETHOLONE
     Indication: Hypersensitivity
     Dosage: 0.1 %, 1-2 DROPS, PRN
     Route: 047
     Dates: start: 20210510
  20. BLACKMORES PROBIOTICS+ DAILY HEALTH [Concomitant]
     Indication: Supplementation therapy
     Dosage: 1 TAB, QD
     Route: 048
     Dates: start: 20210407

REACTIONS (1)
  - Cerebrovascular accident [Recovered/Resolved]

NARRATIVE: CASE EVENT DATE: 20221220
